FAERS Safety Report 4567581-9 (Version None)
Quarter: 2005Q1

REPORT INFORMATION
  Report Type: 
  Country: None (occurrence: None)
  Receive Date: 20050118
  Receipt Date: 20040714
  Transmission Date: 20050727
  Serious: Yes (Other)
  Sender: FDA-Public Use
  Company Number: HQWYE289021JUL04

PATIENT
  Age: 54 Year
  Sex: Female

DRUGS (4)
  1. PREMPRO [Suspect]
     Indication: HORMONE REPLACEMENT THERAPY
     Dates: start: 20000520, end: 20020522
  2. PREMPHASE 14/14 [Suspect]
     Indication: HORMONE REPLACEMENT THERAPY
     Dates: start: 20001210, end: 20010707
  3. PROGESTERONE [Suspect]
     Indication: HORMONE REPLACEMENT THERAPY
     Dates: start: 19990419, end: 20000520
  4. UNSPECIFIED ESTROGEN REPLACEMENT THERAPY (UNSPECIFIED ESTROGEN REPLACE [Suspect]
     Indication: OESTROGEN REPLACEMENT THERAPY
     Dates: start: 19990411, end: 20000520

REACTIONS (1)
  - BREAST CANCER [None]
